FAERS Safety Report 15508458 (Version 12)
Quarter: 2020Q3

REPORT INFORMATION
  Report Type: Report from Study
  Country: FR (occurrence: FR)
  Receive Date: 20181016
  Receipt Date: 20200701
  Transmission Date: 20201102
  Serious: Yes (Hospitalization)
  Sender: FDA-Public Use
  Company Number: FR-EISAI MEDICAL RESEARCH-EC-2018-046244

PATIENT
  Age: 64 Year
  Sex: Female
  Weight: 80 kg

DRUGS (11)
  1. AMLOR [Concomitant]
     Active Substance: AMLODIPINE BESYLATE
  2. LENVATINIB [Suspect]
     Active Substance: LENVATINIB
     Route: 048
     Dates: start: 20190220, end: 20190514
  3. RAMIPRIL. [Concomitant]
     Active Substance: RAMIPRIL
  4. LENVATINIB [Suspect]
     Active Substance: LENVATINIB
     Indication: THYROID CANCER
     Route: 048
     Dates: start: 20180905, end: 20180925
  5. LENVATINIB [Suspect]
     Active Substance: LENVATINIB
     Route: 048
     Dates: start: 20181017, end: 20190210
  6. DAFALGAN CODEINE [Concomitant]
     Active Substance: ACETAMINOPHEN\CODEINE PHOSPHATE
  7. LENVATINIB [Suspect]
     Active Substance: LENVATINIB
     Route: 048
     Dates: start: 20190515, end: 20190717
  8. INEXIUM [Concomitant]
     Active Substance: ESOMEPRAZOLE
  9. LENVATINIB [Suspect]
     Active Substance: LENVATINIB
     Route: 048
     Dates: start: 20180926, end: 20181004
  10. LEVOTHYROX [Concomitant]
     Active Substance: LEVOTHYROXINE
  11. LENVATINIB [Suspect]
     Active Substance: LENVATINIB
     Route: 048
     Dates: start: 20190723, end: 20200302

REACTIONS (4)
  - General physical health deterioration [Recovered/Resolved]
  - Electrocardiogram abnormal [Recovered/Resolved]
  - Nausea [Recovered/Resolved]
  - Pulmonary embolism [Recovered/Resolved]

NARRATIVE: CASE EVENT DATE: 20181009
